FAERS Safety Report 7569182-7 (Version None)
Quarter: 2011Q2

REPORT INFORMATION
  Report Type: 
  Country: None (occurrence: None)
  Receive Date: 20110623
  Receipt Date: 20110609
  Transmission Date: 20111010
  Serious: Yes (Other)
  Sender: FDA-Public Use
  Company Number: PHHY2011CA36414

PATIENT
  Sex: Female

DRUGS (2)
  1. ZOLEDRONIC ACID [Suspect]
     Indication: OSTEOPENIA
     Dosage: 5 MG
     Route: 042
     Dates: start: 20100118
  2. ZOLEDRONIC ACID [Suspect]
     Dosage: 5 MG
     Route: 042
     Dates: start: 20110222

REACTIONS (3)
  - VENTRICULAR TACHYCARDIA [None]
  - CONGENITAL ANOMALY [None]
  - PALPITATIONS [None]
